FAERS Safety Report 20741964 (Version 32)
Quarter: 2024Q4

REPORT INFORMATION
  Report Type: Spontaneous
  Country: CA (occurrence: CA)
  Receive Date: 20220423
  Receipt Date: 20241227
  Transmission Date: 20250114
  Serious: Yes (Hospitalization, Other)
  Sender: CELLTRION
  Company Number: CA-CELLTRION INC.-2021CA018854

PATIENT

DRUGS (41)
  1. INFLECTRA [Suspect]
     Active Substance: INFLIXIMAB-DYYB
     Indication: Crohn^s disease
     Dosage: 5 MG/KG,  0,2,6 THEN EVERY 8 WEEKS
     Route: 042
     Dates: start: 20210923
  2. INFLECTRA [Suspect]
     Active Substance: INFLIXIMAB-DYYB
     Dosage: 5 MG/KG,  0,2,6 THEN EVERY 8 WEEKS
     Route: 042
     Dates: start: 20211105
  3. INFLECTRA [Suspect]
     Active Substance: INFLIXIMAB-DYYB
     Dosage: 5 MG/KG,  0,2,6 THEN EVERY 8 WEEKS
     Route: 042
     Dates: start: 20220228
  4. INFLECTRA [Suspect]
     Active Substance: INFLIXIMAB-DYYB
     Dosage: 5 MG/KG, EVERY 6 WEEKS
     Route: 042
     Dates: start: 20220411
  5. INFLECTRA [Suspect]
     Active Substance: INFLIXIMAB-DYYB
     Dosage: 5 MG/KG, EVERY 6 WEEKS
     Route: 042
     Dates: start: 20220411
  6. INFLECTRA [Suspect]
     Active Substance: INFLIXIMAB-DYYB
     Dosage: 5 MG/KG, EVERY 6 WEEKS
     Route: 042
     Dates: start: 20220525
  7. INFLECTRA [Suspect]
     Active Substance: INFLIXIMAB-DYYB
     Dosage: 5 MG/KG, EVERY 6 WEEKS
     Route: 042
     Dates: start: 20220704
  8. INFLECTRA [Suspect]
     Active Substance: INFLIXIMAB-DYYB
     Dosage: 5 MG/KG, EVERY 6 WEEKS
     Route: 042
     Dates: start: 20220815
  9. INFLECTRA [Suspect]
     Active Substance: INFLIXIMAB-DYYB
     Dosage: 5 MG/KG, EVERY 6 WEEKS
     Route: 042
     Dates: start: 20220926
  10. INFLECTRA [Suspect]
     Active Substance: INFLIXIMAB-DYYB
     Dosage: 10 MG/KG, EVERY 4 WEEKS
     Route: 042
     Dates: start: 20221031
  11. INFLECTRA [Suspect]
     Active Substance: INFLIXIMAB-DYYB
     Dosage: 10 MG/KG, EVERY 4 WEEKS
     Route: 042
     Dates: start: 20221130
  12. INFLECTRA [Suspect]
     Active Substance: INFLIXIMAB-DYYB
     Dosage: 10 MG/KG, EVERY 4 WEEKS
     Route: 042
     Dates: start: 20221229
  13. INFLECTRA [Suspect]
     Active Substance: INFLIXIMAB-DYYB
     Dosage: 10 MG/KG, EVERY 4 WEEKS
     Route: 042
     Dates: start: 20230223
  14. INFLECTRA [Suspect]
     Active Substance: INFLIXIMAB-DYYB
     Dosage: 1180 MG, EVERY 4 WEEKS
     Route: 042
     Dates: start: 20230323
  15. INFLECTRA [Suspect]
     Active Substance: INFLIXIMAB-DYYB
     Dosage: 1184 MG, EVERY 4 WEEKS
     Route: 042
     Dates: start: 20230418
  16. INFLECTRA [Suspect]
     Active Substance: INFLIXIMAB-DYYB
     Dosage: 10 MG/KG, EVERY 4 WEEKS
     Route: 042
     Dates: start: 20230518
  17. INFLECTRA [Suspect]
     Active Substance: INFLIXIMAB-DYYB
     Dosage: 10 MG/KG, EVERY 4 WEEKS
     Route: 042
     Dates: start: 20230518
  18. INFLECTRA [Suspect]
     Active Substance: INFLIXIMAB-DYYB
     Dosage: 1200 MG, EVERY 4 WEEKS
     Route: 042
     Dates: start: 20230615
  19. INFLECTRA [Suspect]
     Active Substance: INFLIXIMAB-DYYB
     Dosage: 1181 MG, EVERY 4 WEEKS
     Route: 042
     Dates: start: 20230712
  20. INFLECTRA [Suspect]
     Active Substance: INFLIXIMAB-DYYB
     Dosage: 1177 MG, AFTER 6 WEEKS AND 2 DAYS (PRESCRIBED EVERY 4 WEEKS)
     Route: 042
     Dates: start: 20230825
  21. INFLECTRA [Suspect]
     Active Substance: INFLIXIMAB-DYYB
     Dosage: 10 MG/KG, EVERY 4 WEEKS
     Route: 042
     Dates: start: 20230926
  22. INFLECTRA [Suspect]
     Active Substance: INFLIXIMAB-DYYB
     Dosage: 10 MG/KG (1147 MG), EVERY 4 WEEKS
     Route: 042
     Dates: start: 20231024
  23. INFLECTRA [Suspect]
     Active Substance: INFLIXIMAB-DYYB
     Dosage: 10 MG/KG (1141 MG), EVERY 4 WEEKS
     Route: 042
     Dates: start: 20231121
  24. INFLECTRA [Suspect]
     Active Substance: INFLIXIMAB-DYYB
     Dosage: 10 MG/KG (1100 MG), EVERY 4 WEEKS AND 2 DAYS
     Route: 042
     Dates: start: 20231221
  25. INFLECTRA [Suspect]
     Active Substance: INFLIXIMAB-DYYB
     Dosage: 10 MG/KG (1153 MG), EVERY 4 WEEKS
     Route: 042
     Dates: start: 20240118
  26. INFLECTRA [Suspect]
     Active Substance: INFLIXIMAB-DYYB
     Dosage: 10 MG/KG (1161 MG), EVERY 4 WEEKS
     Route: 042
     Dates: start: 20240215
  27. INFLECTRA [Suspect]
     Active Substance: INFLIXIMAB-DYYB
     Dosage: 10 MG/KG (1161 MG), EVERY 4 WEEKS
     Route: 042
     Dates: start: 20240312
  28. INFLECTRA [Suspect]
     Active Substance: INFLIXIMAB-DYYB
     Dosage: 1170 MG, EVERY 4 WEEKS
     Route: 042
     Dates: start: 20240409
  29. INFLECTRA [Suspect]
     Active Substance: INFLIXIMAB-DYYB
     Dosage: 10 MG/KG (1180 MG), EVERY 4 WEEKS
     Route: 042
     Dates: start: 20240507
  30. INFLECTRA [Suspect]
     Active Substance: INFLIXIMAB-DYYB
     Dosage: 10 MG/KG, EVERY 4 WEEKS
     Route: 042
     Dates: start: 20240604
  31. INFLECTRA [Suspect]
     Active Substance: INFLIXIMAB-DYYB
     Dosage: 10 MG/KG (1170 MG), AFTER 4 WEEKS AND 2 DAYS (PRESCRIBED EVERY 4 WEEKS)
     Route: 042
     Dates: start: 20240704
  32. INFLECTRA [Suspect]
     Active Substance: INFLIXIMAB-DYYB
     Dosage: 1146 MG, AFTER 4 WEEKS AND 6 DAYS (PRESCRIBED EVERY 4 WEEKS)
     Route: 042
     Dates: start: 20240807
  33. INFLECTRA [Suspect]
     Active Substance: INFLIXIMAB-DYYB
     Dosage: 10 MG/KG (1160 MG), AFTER 3 WEEKS (PRESCRIBED EVERY 4 WEEKS)
     Route: 042
     Dates: start: 20240828
  34. INFLECTRA [Suspect]
     Active Substance: INFLIXIMAB-DYYB
     Dosage: 10 MG/KG (1160 MG), AFTER 4 WEEKS 1 DAYS (PRESCRIBED WAS EVERY 4 WEEKS)
     Route: 042
     Dates: start: 20240926
  35. INFLECTRA [Suspect]
     Active Substance: INFLIXIMAB-DYYB
     Dosage: 10 MG/KG (1150 MG), AFTER 3 WEEKS 6 DAYS (PRESCRIBED WAS EVERY 4 WEEKS)
     Route: 042
     Dates: start: 20241023
  36. INFLECTRA [Suspect]
     Active Substance: INFLIXIMAB-DYYB
     Dosage: 1180 MG (10 MG/KG), EVERY 4 WEEKS
     Route: 042
     Dates: start: 20241120
  37. INFLECTRA [Suspect]
     Active Substance: INFLIXIMAB-DYYB
     Dosage: 1170 MG (10 MG/KG), EVERY 4 WEEKS
     Route: 042
     Dates: start: 20241218
  38. OZEMPIC [Concomitant]
     Active Substance: SEMAGLUTIDE
     Dosage: 1 DF
  39. PREDNISONE [Concomitant]
     Active Substance: PREDNISONE
     Dosage: 1 DF
  40. PREDNISONE [Concomitant]
     Active Substance: PREDNISONE
     Dosage: UNK (TAPER, BELOW 30 MG)
  41. PREDNISONE [Concomitant]
     Active Substance: PREDNISONE
     Dosage: 1 DF

REACTIONS (15)
  - Condition aggravated [Recovered/Resolved]
  - Cholelithiasis [Not Recovered/Not Resolved]
  - Drug ineffective [Unknown]
  - Drug level decreased [Unknown]
  - Poor venous access [Unknown]
  - Abdominal tenderness [Not Recovered/Not Resolved]
  - Hepatic steatosis [Not Recovered/Not Resolved]
  - Splenomegaly [Unknown]
  - Infusion site bruising [Recovering/Resolving]
  - Infusion site swelling [Recovering/Resolving]
  - Infusion site extravasation [Recovering/Resolving]
  - Blood pressure increased [Not Recovered/Not Resolved]
  - Defaecation urgency [Not Recovered/Not Resolved]
  - Off label use [Unknown]
  - Inappropriate schedule of product administration [Unknown]

NARRATIVE: CASE EVENT DATE: 20211105
